FAERS Safety Report 4753789-6 (Version None)
Quarter: 2005Q3

REPORT INFORMATION
  Report Type: 
  Country: None (occurrence: None)
  Receive Date: 20050826
  Receipt Date: 20050615
  Transmission Date: 20060218
  Serious: Yes (Hospitalization)
  Sender: FDA-Public Use
  Company Number: US-AMGEN-US147408

PATIENT
  Sex: Female

DRUGS (5)
  1. NEUPOGEN [Suspect]
     Indication: CHEMOTHERAPY
     Route: 058
     Dates: start: 20050430, end: 20050501
  2. CYCLOPHOSPHAMIDE [Concomitant]
     Dates: end: 20050527
  3. DOXORUBICIN HYDROCHLORIDE [Concomitant]
     Dates: end: 20050527
  4. ZINECARD [Concomitant]
     Dates: end: 20050527
  5. EPOETIN ALFA [Concomitant]

REACTIONS (1)
  - MYALGIA [None]
